FAERS Safety Report 5933801-9 (Version None)
Quarter: 2008Q4

REPORT INFORMATION
  Report Type: 
  Country: None (occurrence: None)
  Receive Date: 20081024
  Receipt Date: 20081014
  Transmission Date: 20090506
  Serious: Yes (Other)
  Sender: FDA-Public Use
  Company Number: 2008BI027595

PATIENT
  Age: 44 Year
  Sex: Female

DRUGS (3)
  1. AVONEX [Suspect]
     Indication: MULTIPLE SCLEROSIS
     Dosage: IM
     Route: 030
     Dates: end: 20030101
  2. . [Concomitant]
  3. . [Concomitant]

REACTIONS (1)
  - MYOCARDIAL INFARCTION [None]
